FAERS Safety Report 8702549 (Version 2)
Quarter: 2012Q4

REPORT INFORMATION
  Report Type: Report from Study
  Country: US (occurrence: US)
  Receive Date: 20120803
  Receipt Date: 20121015
  Transmission Date: 20130627
  Serious: Yes (Hospitalization)
  Sender: FDA-Public Use
  Company Number: US-ROCHE-1059626

PATIENT
  Sex: Male

DRUGS (3)
  1. PEG-INTERFERON ALFA 2A [Suspect]
     Indication: HEPATITIS C
     Route: 058
     Dates: start: 20120316
  2. RIBAVIRIN [Suspect]
     Indication: HEPATITIS C
     Route: 048
     Dates: start: 20120316
  3. LISINOPRIL [Concomitant]

REACTIONS (18)
  - Haemoglobin decreased [Unknown]
  - Nausea [Unknown]
  - Arthralgia [Unknown]
  - Influenza like illness [Unknown]
  - Dizziness [Unknown]
  - Blood sodium decreased [Unknown]
  - Decreased appetite [Unknown]
  - Tuberculosis [Unknown]
  - Pneumonia [Unknown]
  - Haemoptysis [Unknown]
  - Cough [Unknown]
  - Sputum discoloured [Unknown]
  - Diarrhoea [Unknown]
  - Dyspnoea [Unknown]
  - Asthenia [Unknown]
  - Fatigue [Unknown]
  - Haemoglobin decreased [Unknown]
  - White blood cell count decreased [Unknown]
